FAERS Safety Report 24570895 (Version 2)
Quarter: 2024Q4

REPORT INFORMATION
  Report Type: Spontaneous
  Country: US (occurrence: US)
  Receive Date: 20241101
  Receipt Date: 20241128
  Transmission Date: 20250114
  Serious: No
  Sender: ALEXION PHARMACEUTICALS
  Company Number: US-AstraZeneca-CH-00734934A

PATIENT

DRUGS (4)
  1. BYDUREON BCISE [Suspect]
     Active Substance: EXENATIDE
     Dosage: UNK
  2. BYDUREON BCISE [Suspect]
     Active Substance: EXENATIDE
     Dosage: UNK
  3. BYDUREON BCISE [Suspect]
     Active Substance: EXENATIDE
     Dosage: UNK
  4. BYDUREON BCISE [Suspect]
     Active Substance: EXENATIDE
     Dosage: UNK

REACTIONS (1)
  - Hypoacusis [Unknown]
